FAERS Safety Report 4532966-3 (Version None)
Quarter: 2004Q4

REPORT INFORMATION
  Report Type: 
  Country: None (occurrence: None)
  Receive Date: 20041220
  Receipt Date: 20041220
  Transmission Date: 20050328
  Serious: Yes (Hospitalization)
  Sender: FDA-Public Use
  Company Number: None

PATIENT
  Age: 78 Year
  Sex: Female
  Weight: 41.7309 kg

DRUGS (1)
  1. REMINYL [Suspect]
     Indication: DEMENTIA
     Dosage: 12 MG  ONE/DAY ORAL
     Route: 048
     Dates: start: 20040625, end: 20040625

REACTIONS (1)
  - COMA [None]
